FAERS Safety Report 8643304 (Version 2)
Quarter: 2013Q1

REPORT INFORMATION
  Report Type: Spontaneous
  Country: BR (occurrence: BR)
  Receive Date: 20120629
  Receipt Date: 20130110
  Transmission Date: 20140127
  Serious: Yes (Death, Hospitalization, Other)
  Sender: FDA-Public Use
  Company Number: PHHY2012BR055229

PATIENT
  Age: 88 None
  Sex: Male

DRUGS (5)
  1. EXELON PATCH [Suspect]
     Indication: DEMENTIA
     Dosage: 13.3 MG, UNK
     Route: 062
  2. EXELON PATCH [Suspect]
     Dosage: 18 MG, UNK
     Route: 062
  3. EXELON PATCH [Suspect]
     Dosage: 27 MG DAILY
     Route: 062
     Dates: start: 201203
  4. ANTIDEPRESSANTS [Concomitant]
     Indication: DEPRESSION
     Dosage: UNK UKN, UNK
  5. ANTIBIOTICS [Concomitant]

REACTIONS (4)
  - Myocardial infarction [Fatal]
  - Respiratory failure [Fatal]
  - Hand fracture [Unknown]
  - Pneumonia [Unknown]
